FAERS Safety Report 7601749-X (Version None)
Quarter: 2011Q2

REPORT INFORMATION
  Report Type: 
  Country: None (occurrence: None)
  Receive Date: 20110630
  Receipt Date: 20110616
  Transmission Date: 20111010
  Serious: Yes (Death)
  Sender: FDA-Public Use
  Company Number: 201105007

PATIENT
  Age: 64 Year
  Sex: Male

DRUGS (4)
  1. ASPIRIN [Concomitant]
  2. XIAFLEX [Suspect]
     Indication: DUPUYTREN'S CONTRACTURE
     Dosage: 0.58 MG, 1 IN 1 D, INTRALESIONAL
     Route: 026
     Dates: start: 20100930, end: 20100930
  3. ZOCOR [Concomitant]
  4. IBUPROFEN [Concomitant]

REACTIONS (6)
  - OEDEMA PERIPHERAL [None]
  - MULTIPLE INJURIES [None]
  - TRAUMATIC BRAIN INJURY [None]
  - ROAD TRAFFIC ACCIDENT [None]
  - ACCIDENTAL DEATH [None]
  - CONTUSION [None]
